FAERS Safety Report 5104384-0 (Version None)
Quarter: 2006Q3

REPORT INFORMATION
  Report Type: 
  Country: None (occurrence: None)
  Receive Date: 20060908
  Receipt Date: 20060908
  Transmission Date: 20061208
  Serious: Yes (Hospitalization)
  Sender: FDA-Public Use
  Company Number: None

PATIENT
  Age: 50 Year
  Sex: Male

DRUGS (1)
  1. TIGECYCLINE   50MG [Suspect]
     Indication: ABSCESS INTESTINAL
     Dosage: 50MG   BID   IV BOLUS
     Route: 040

REACTIONS (5)
  - DRUG ERUPTION [None]
  - DRUG HYPERSENSITIVITY [None]
  - HYPOTENSION [None]
  - PRURITUS [None]
  - URTICARIA [None]
